FAERS Safety Report 21749211 (Version 2)
Quarter: 2023Q2

REPORT INFORMATION
  Report Type: Spontaneous
  Country: JP (occurrence: JP)
  Receive Date: 20221219
  Receipt Date: 20230607
  Transmission Date: 20230722
  Serious: Yes (Other)
  Sender: FDA-Public Use
  Company Number: JP-TAKEDA-2022TJP078885

PATIENT
  Age: 78 Year
  Sex: Male
  Weight: 58.1 kg

DRUGS (14)
  1. ADCETRIS [Suspect]
     Active Substance: BRENTUXIMAB VEDOTIN
     Indication: Angioimmunoblastic T-cell lymphoma
     Dosage: 100 MILLIGRAM, Q3WEEKS
     Route: 041
     Dates: start: 20220426, end: 20220517
  2. ADCETRIS [Suspect]
     Active Substance: BRENTUXIMAB VEDOTIN
     Dosage: 80 MILLIGRAM
     Route: 041
     Dates: start: 20220607, end: 20220607
  3. ADCETRIS [Suspect]
     Active Substance: BRENTUXIMAB VEDOTIN
     Dosage: 95 MILLIGRAM
     Route: 041
     Dates: start: 20220729, end: 20221108
  4. ADRIACIN [Suspect]
     Active Substance: DOXORUBICIN HYDROCHLORIDE
     Indication: Angioimmunoblastic T-cell lymphoma
     Dosage: 66 MILLIGRAM
     Route: 041
     Dates: start: 20220426
  5. CYCLOPHOSPHAMIDE [Suspect]
     Active Substance: CYCLOPHOSPHAMIDE
     Indication: Angioimmunoblastic T-cell lymphoma
     Dosage: 1000 MILLIGRAM
     Route: 041
     Dates: start: 20220426
  6. PREDNISOLONE [Suspect]
     Active Substance: PREDNISOLONE
     Indication: Angioimmunoblastic T-cell lymphoma
     Dosage: 60 MILLIGRAM
     Route: 048
     Dates: start: 20220426
  7. AMLODIPINE\TELMISARTAN [Concomitant]
     Active Substance: AMLODIPINE\TELMISARTAN
     Indication: Hypertension
     Dosage: 1 DOSAGE FORM, QD
     Route: 048
     Dates: start: 20160823
  8. APREPITANT [Concomitant]
     Active Substance: APREPITANT
     Indication: Gastrointestinal disorder prophylaxis
     Dosage: 125 MILLIGRAM, QD
     Route: 048
     Dates: start: 20220426
  9. ALUMINUM HYDROXIDE\MAGNESIUM HYDROXIDE [Concomitant]
     Active Substance: ALUMINUM HYDROXIDE\MAGNESIUM HYDROXIDE
     Indication: Gastritis
     Dosage: 12 GRAM, TID
     Route: 048
  10. BARACLUDE [Concomitant]
     Active Substance: ENTECAVIR
     Indication: Hepatitis B
     Dosage: 0.5 MILLIGRAM, QD
     Route: 048
  11. NAFTOPIDIL [Concomitant]
     Active Substance: NAFTOPIDIL
     Indication: Benign prostatic hyperplasia
     Dosage: 50 MILLIGRAM, QD
     Route: 048
     Dates: start: 20180320
  12. ESOMEPRAZOLE MAGNESIUM [Concomitant]
     Active Substance: ESOMEPRAZOLE MAGNESIUM
     Indication: Gastrooesophageal reflux disease
     Dosage: 20 MILLIGRAM, QD
     Route: 048
  13. EZETIMIBE [Concomitant]
     Active Substance: EZETIMIBE
     Indication: Hyperlipidaemia
     Dosage: 10 MILLIGRAM, QD
     Route: 048
     Dates: start: 20160823
  14. SHAKUYAKUKANZOTO [Concomitant]
     Active Substance: HERBALS
     Indication: Gastritis
     Dosage: 7.5 MILLIGRAM, TID
     Route: 048

REACTIONS (7)
  - Gallbladder cancer [Recovering/Resolving]
  - Myelosuppression [Recovered/Resolved]
  - Pneumonia [Unknown]
  - Pancreatic cyst [Unknown]
  - Bacterial infection [Unknown]
  - Sinusitis [Unknown]
  - Malaise [Recovered/Resolved]

NARRATIVE: CASE EVENT DATE: 20220622
